FAERS Safety Report 5391789-6 (Version None)
Quarter: 2007Q3

REPORT INFORMATION
  Report Type: 
  Country: None (occurrence: None)
  Receive Date: 20070717
  Receipt Date: 20070705
  Transmission Date: 20080115
  Serious: Yes (Hospitalization, Other)
  Sender: FDA-Public Use
  Company Number: 2006JP000556

PATIENT
  Age: 18 Year
  Sex: Male

DRUGS (5)
  1. PROGRAF [Suspect]
     Indication: BONE MARROW TRANSPLANT
     Dosage: ORAL
     Route: 048
     Dates: end: 20041001
  2. METHOTREXATE PER ORAL NOS [Concomitant]
  3. ANTITHYMOCYTE IMMUNOGLOBULIN (ANTITHYMOCYTE IMMUNOGLOBULIN) FORMULATIO [Concomitant]
  4. PREDNISOLONE [Concomitant]
  5. MYCOPHENOLATE MOFETIL [Concomitant]

REACTIONS (3)
  - EPSTEIN-BARR VIRUS INFECTION [None]
  - GRAFT VERSUS HOST DISEASE [None]
  - MENINGITIS PNEUMOCOCCAL [None]
